FAERS Safety Report 23343256 (Version 1)
Quarter: 2023Q4

REPORT INFORMATION
  Report Type: Spontaneous
  Country: KR (occurrence: KR)
  Receive Date: 20231227
  Receipt Date: 20231227
  Transmission Date: 20240110
  Serious: Yes (Hospitalization, Other)
  Sender: FDA-Public Use
  Company Number: KR-MLMSERVICE-20231218-4732096-1

PATIENT
  Age: 74 Year
  Sex: Male

DRUGS (2)
  1. NAPROXEN [Suspect]
     Active Substance: NAPROXEN
     Indication: Pain
     Dosage: 2 DOSAGE FORM (500 MG TABLET BID), QD FOR AT LEAST 3 YEARS
     Route: 065
  2. POLMACOXIB [Suspect]
     Active Substance: POLMACOXIB
     Indication: Pain
     Dosage: 1 DF (2 MG), AS PRO RE NATA FOR AT LEAST 3 YEARS
     Route: 065

REACTIONS (1)
  - Intestinal diaphragm disease [Recovering/Resolving]
